FAERS Safety Report 14044614 (Version 1)
Quarter: 2017Q4

REPORT INFORMATION
  Report Type: Report from Study
  Country: None (occurrence: US)
  Receive Date: 20171005
  Receipt Date: 20171005
  Transmission Date: 20180321
  Serious: Yes (Hospitalization, Other)
  Sender: FDA-Public Use
  Company Number: US-ABBVIE-17K-163-2095420-00

PATIENT
  Age: 26 Year
  Sex: Female

DRUGS (9)
  1. VANCOMYCIN [Suspect]
     Active Substance: VANCOMYCIN
     Indication: CELLULITIS
     Route: 042
     Dates: end: 201709
  2. EXCEDRIN [Concomitant]
     Active Substance: ACETAMINOPHEN\ASPIRIN\CAFFEINE
     Indication: PAIN
  3. HUMIRA [Suspect]
     Active Substance: ADALIMUMAB
     Indication: COLITIS ULCERATIVE
     Route: 058
     Dates: start: 20170810, end: 20170810
  4. PREDNISONE. [Suspect]
     Active Substance: PREDNISONE
     Indication: VASCULITIS
     Route: 065
  5. EXCEDRIN [Concomitant]
     Active Substance: ACETAMINOPHEN\ASPIRIN\CAFFEINE
     Indication: HEADACHE
  6. PEPCID [Concomitant]
     Active Substance: FAMOTIDINE
     Indication: PROPHYLAXIS
  7. HUMIRA [Suspect]
     Active Substance: ADALIMUMAB
     Route: 058
     Dates: start: 20170825, end: 20170825
  8. PEPCID [Concomitant]
     Active Substance: FAMOTIDINE
     Indication: GASTRIC DISORDER
  9. ZOSYN [Suspect]
     Active Substance: PIPERACILLIN SODIUM\TAZOBACTAM SODIUM
     Indication: CELLULITIS
     Route: 042
     Dates: end: 201709

REACTIONS (17)
  - Pulmonary thrombosis [Unknown]
  - Vasculitis [Recovering/Resolving]
  - Blister [Recovering/Resolving]
  - Hypertension [Recovered/Resolved with Sequelae]
  - Thrombosis [Recovering/Resolving]
  - Arthralgia [Unknown]
  - Haematoma [Not Recovered/Not Resolved]
  - Pain [Recovering/Resolving]
  - Inflammation [Unknown]
  - Swelling [Recovering/Resolving]
  - Cellulitis [Recovering/Resolving]
  - Acute kidney injury [Recovered/Resolved]
  - Peripheral swelling [Unknown]
  - Weight bearing difficulty [Recovered/Resolved]
  - Erythema [Recovered/Resolved]
  - Headache [Recovering/Resolving]
  - Arthritis [Unknown]

NARRATIVE: CASE EVENT DATE: 2017
